FAERS Safety Report 19832080 (Version 1)
Quarter: 2021Q3

REPORT INFORMATION
  Report Type: Spontaneous
  Country: US (occurrence: US)
  Receive Date: 20210914
  Receipt Date: 20210914
  Transmission Date: 20211014
  Serious: No
  Sender: FDA-Public Use
  Company Number: None

PATIENT
  Sex: Female

DRUGS (1)
  1. STELARA [Suspect]
     Active Substance: USTEKINUMAB
     Indication: RHEUMATOID ARTHRITIS
     Dosage: ?          OTHER DOSE:90MG/1ML;OTHER FREQUENCY:EVERY 12 WEEKS;?
     Route: 058
     Dates: start: 202010

REACTIONS (2)
  - Red blood cell sedimentation rate decreased [None]
  - Inflammation [None]
